FAERS Safety Report 16660191 (Version 1)
Quarter: 2019Q3

REPORT INFORMATION
  Report Type: Spontaneous
  Country: DE (occurrence: DE)
  Receive Date: 20190802
  Receipt Date: 20190802
  Transmission Date: 20191004
  Serious: Yes (Hospitalization, Other)
  Sender: FDA-Public Use
  Company Number: DE-ACCORD-150019

PATIENT
  Age: 67 Year
  Sex: Male
  Weight: 76 kg

DRUGS (1)
  1. QUETIAPIN ACCORD [Suspect]
     Active Substance: QUETIAPINE
     Indication: DEPRESSION
     Dosage: 1-2 X TGL., 200 MG
     Route: 048
     Dates: start: 201904, end: 201906

REACTIONS (5)
  - Somnolence [Recovering/Resolving]
  - Aggression [Recovering/Resolving]
  - Cardiac fibrillation [Recovering/Resolving]
  - Syncope [Recovering/Resolving]
  - Gait disturbance [Recovering/Resolving]

NARRATIVE: CASE EVENT DATE: 201904
